FAERS Safety Report 7811676-0 (Version None)
Quarter: 2011Q4

REPORT INFORMATION
  Report Type: 
  Country: None (occurrence: None)
  Receive Date: 20111013
  Receipt Date: 20111010
  Transmission Date: 20120403
  Serious: No
  Sender: FDA-Public Use
  Company Number: US-TEVA-304761USA

PATIENT
  Sex: Female
  Weight: 63.56 kg

DRUGS (5)
  1. PLAN B ONE-STEP [Suspect]
     Indication: POST COITAL CONTRACEPTION
     Dosage: 1.5 MILLIGRAM;
     Route: 048
     Dates: start: 20111007, end: 20111007
  2. CYMBALTA [Concomitant]
     Indication: DEPRESSION
  3. AMBIEN [Concomitant]
     Indication: SLEEP DISORDER
  4. XANAX [Concomitant]
     Indication: ANXIETY
  5. KLONOPIN [Concomitant]
     Indication: CONVULSION

REACTIONS (6)
  - BREAST TENDERNESS [None]
  - NAUSEA [None]
  - DIZZINESS [None]
  - ABDOMINAL PAIN LOWER [None]
  - HEADACHE [None]
  - FATIGUE [None]
